FAERS Safety Report 15465350 (Version 2)
Quarter: 2018Q4

REPORT INFORMATION
  Report Type: Spontaneous
  Country: IT (occurrence: IT)
  Receive Date: 20181004
  Receipt Date: 20181126
  Transmission Date: 20190204
  Serious: Yes (Death, Life-Threatening, Hospitalization, Other)
  Sender: FDA-Public Use
  Company Number: IT-BRISTOL-MYERS SQUIBB COMPANY-BMS-2018-088858

PATIENT
  Age: 76 Year

DRUGS (1)
  1. ABATACEPT [Suspect]
     Active Substance: ABATACEPT
     Indication: RHEUMATOID ARTHRITIS
     Dosage: 125 MG, QWK
     Route: 058
     Dates: start: 20180626, end: 201808

REACTIONS (4)
  - Gingival ulceration [Unknown]
  - Rash vesicular [Unknown]
  - Mouth ulceration [Unknown]
  - Pneumocystis jirovecii pneumonia [Fatal]
